FAERS Safety Report 8848259 (Version 1)
Quarter: 2012Q4

REPORT INFORMATION
  Report Type: Report from Study
  Country: BR (occurrence: BR)
  Receive Date: 20121018
  Receipt Date: 20121018
  Transmission Date: 20130627
  Serious: Yes (Other)
  Sender: FDA-Public Use
  Company Number: BR-ROCHE-1146533

PATIENT
  Age: 60 Year
  Sex: Female
  Weight: 49 kg

DRUGS (5)
  1. CAPECITABINE [Suspect]
     Indication: COLORECTAL CANCER
     Route: 065
     Dates: start: 20110201, end: 20110704
  2. BEVACIZUMAB [Suspect]
     Indication: COLORECTAL CANCER
     Route: 065
     Dates: start: 20110606, end: 20120130
  3. BEVACIZUMAB [Suspect]
     Route: 065
     Dates: start: 20120305, end: 20121001
  4. OXALIPLATIN [Concomitant]
     Route: 065
  5. IRINOTECAN [Concomitant]
     Route: 065

REACTIONS (1)
  - Disease progression [Unknown]
